FAERS Safety Report 5101720-6 (Version None)
Quarter: 2006Q3

REPORT INFORMATION
  Report Type: 
  Country: None (occurrence: None)
  Receive Date: 20060731
  Receipt Date: 20060518
  Transmission Date: 20061208
  Serious: No
  Sender: FDA-Public Use
  Company Number: 2006PV014057

PATIENT
  Age: 77 Year
  Sex: Male
  Weight: 74.8435 kg

DRUGS (5)
  1. BYETTA [Suspect]
     Indication: DIABETES MELLITUS NON-INSULIN-DEPENDENT
     Dosage: SEE IMAGE
     Route: 058
     Dates: start: 20051012, end: 20051110
  2. BYETTA [Suspect]
     Indication: DIABETES MELLITUS NON-INSULIN-DEPENDENT
     Dosage: SEE IMAGE
     Route: 058
     Dates: start: 20051111
  3. LANTUS [Concomitant]
  4. HUMALOG [Concomitant]
  5. PRANDIN [Concomitant]

REACTIONS (3)
  - ANOREXIA [None]
  - FEELING ABNORMAL [None]
  - WEIGHT DECREASED [None]
